FAERS Safety Report 9487245 (Version 1)
Quarter: 2013Q3

REPORT INFORMATION
  Report Type: Spontaneous
  Country: CA (occurrence: CA)
  Receive Date: 20130829
  Receipt Date: 20130829
  Transmission Date: 20140515
  Serious: Yes (Hospitalization)
  Sender: FDA-Public Use
  Company Number: CA-AMGEN-US065876

PATIENT
  Sex: Female

DRUGS (13)
  1. ENBREL [Suspect]
     Indication: RHEUMATOID ARTHRITIS
     Dosage: UNK UNK, UNK
     Route: 065
     Dates: start: 20020419, end: 20021111
  2. PREDNISONE [Concomitant]
     Dosage: 12 MG, QD
  3. ROFECOXIB [Concomitant]
     Dosage: 25 MG, QD
  4. DOMPERIDONE [Concomitant]
     Dosage: 10 MG, TID
  5. LANSOPRAZOLE [Concomitant]
     Dosage: 30 MG, QD
  6. ESTROGEL [Concomitant]
     Dosage: 2 UNK, QD
  7. ERGOCALCIFEROL [Concomitant]
     Dosage: 1000 IU/KG, QD
  8. CALCIUM [Concomitant]
     Dosage: 50 MG, TID
  9. RISEDRONATE SODIUM [Concomitant]
     Dosage: 40 MG, QWK
  10. PANADEINE CO [Concomitant]
  11. TOCOPHEROL [Concomitant]
     Dosage: 40 IU/KG, QD
  12. CODEINE SULFATE [Concomitant]
     Dosage: 100 MG, BID
  13. TESTOSTERONE [Concomitant]
     Dosage: 40 MG, QD

REACTIONS (2)
  - Localised infection [Not Recovered/Not Resolved]
  - Toe amputation [Not Recovered/Not Resolved]
